FAERS Safety Report 9522306 (Version 2)
Quarter: 2013Q3

REPORT INFORMATION
  Report Type: Report from Study
  Country: AU (occurrence: AU)
  Receive Date: 20130913
  Receipt Date: 20130930
  Transmission Date: 20140515
  Serious: Yes (Hospitalization)
  Sender: FDA-Public Use
  Company Number: PHHY2013AU100007

PATIENT
  Sex: Male

DRUGS (3)
  1. CLOZARIL [Suspect]
     Indication: SCHIZOPHRENIA
     Dosage: 25 MG, UNK
     Dates: start: 20030822
  2. CLOZARIL [Suspect]
     Dosage: UNK
  3. CLOZARIL [Suspect]
     Dosage: 450 MG, PER DAY

REACTIONS (3)
  - Schizophrenia [Recovering/Resolving]
  - Paranoia [Recovering/Resolving]
  - Depersonalisation [Recovering/Resolving]
